FAERS Safety Report 7530758-4 (Version None)
Quarter: 2011Q2

REPORT INFORMATION
  Report Type: 
  Country: None (occurrence: None)
  Receive Date: 20110607
  Receipt Date: 20110607
  Transmission Date: 20111010
  Serious: Yes (Hospitalization)
  Sender: FDA-Public Use
  Company Number: FR-ABBOTT-10P-056-0665267-00

PATIENT
  Sex: Female

DRUGS (5)
  1. KALETRA [Suspect]
     Indication: HIV INFECTION
     Route: 048
     Dates: start: 20100429, end: 20100628
  2. IBUPROFEN [Suspect]
     Indication: PRODUCT USED FOR UNKNOWN INDICATION
     Dosage: AT NEED.
     Dates: start: 20091101, end: 20100628
  3. IMOVANE [Suspect]
     Indication: PRODUCT USED FOR UNKNOWN INDICATION
     Dosage: DAILY DOSE: 3.25MG AT NEED
     Route: 048
     Dates: start: 20091101
  4. TRUVADA [Suspect]
     Indication: HIV INFECTION
     Route: 048
     Dates: start: 20100429, end: 20100628
  5. BACTRIM [Suspect]
     Indication: PRODUCT USED FOR UNKNOWN INDICATION
     Route: 048
     Dates: start: 20100419, end: 20100628

REACTIONS (11)
  - OEDEMA PERIPHERAL [None]
  - DIARRHOEA [None]
  - HYPOALBUMINAEMIA [None]
  - HYPOPROTEINAEMIA [None]
  - NAUSEA [None]
  - VOMITING [None]
  - HYPOPHOSPHATAEMIA [None]
  - HEADACHE [None]
  - WEIGHT INCREASED [None]
  - RENAL TUBULAR NECROSIS [None]
  - HYPERTENSION [None]
